FAERS Safety Report 5999401-X (Version None)
Quarter: 2008Q4

REPORT INFORMATION
  Report Type: 
  Country: None (occurrence: None)
  Receive Date: 20081215
  Receipt Date: 20080803
  Transmission Date: 20090506
  Serious: No
  Sender: FDA-Public Use
  Company Number: US-AMGEN-KDL299124

PATIENT
  Sex: Female

DRUGS (2)
  1. ENBREL [Suspect]
     Indication: COLITIS ULCERATIVE
     Route: 058
     Dates: start: 20080701
  2. ENBREL [Suspect]
     Indication: DRUG USE FOR UNKNOWN INDICATION

REACTIONS (1)
  - HEADACHE [None]
